FAERS Safety Report 5835507-3 (Version None)
Quarter: 2008Q3

REPORT INFORMATION
  Report Type: 
  Country: None (occurrence: None)
  Receive Date: 20080806
  Receipt Date: 20080729
  Transmission Date: 20090109
  Serious: Yes (Hospitalization, Congenital Anomaly)
  Sender: FDA-Public Use
  Company Number: A0680417A

PATIENT
  Sex: Male
  Weight: 2.3 kg

DRUGS (5)
  1. PAROXETINE HCL [Suspect]
     Indication: DEPRESSION
     Dosage: 40MG PER DAY
     Dates: start: 20021003, end: 20020101
  2. PAXIL [Suspect]
     Indication: DEPRESSION
     Dosage: 60MG PER DAY
     Dates: start: 20021201, end: 20040101
  3. PAXIL [Suspect]
  4. HYDROXYZINE [Concomitant]
     Indication: DEPRESSION
     Dosage: 25MG THREE TIMES PER DAY
     Dates: start: 20020101
  5. VISTARIL [Concomitant]
     Dates: start: 20020101, end: 20030101

REACTIONS (7)
  - DRUG EXPOSURE DURING PREGNANCY [None]
  - INGUINAL HERNIA [None]
  - LARYNGEAL OEDEMA [None]
  - LARYNGOMALACIA [None]
  - MULTIPLE CONGENITAL ABNORMALITIES [None]
  - REFLUX LARYNGITIS [None]
  - WITHDRAWAL SYNDROME [None]
